FAERS Safety Report 10609842 (Version 1)
Quarter: 2014Q4

REPORT INFORMATION
  Report Type: Spontaneous
  Country: US (occurrence: US)
  Receive Date: 20141126
  Receipt Date: 20141126
  Transmission Date: 20150529
  Serious: No
  Sender: FDA-Public Use
  Company Number: US-TEVA-524828USA

PATIENT
  Age: 39 Year
  Sex: Female
  Weight: 61.29 kg

DRUGS (4)
  1. OXYCODONE [Concomitant]
     Active Substance: OXYCODONE
     Indication: PAIN
  2. NUVIGIL [Suspect]
     Active Substance: ARMODAFINIL
     Indication: DISTURBANCE IN ATTENTION
  3. RESTORIL [Concomitant]
     Active Substance: TEMAZEPAM
     Indication: SLEEP DISORDER
  4. NUVIGIL [Suspect]
     Active Substance: ARMODAFINIL
     Indication: FATIGUE
     Dates: start: 20141107

REACTIONS (2)
  - Off label use [Unknown]
  - Drug screen positive [Recovered/Resolved]

NARRATIVE: CASE EVENT DATE: 20141121
